FAERS Safety Report 12351232 (Version 1)
Quarter: 2016Q2

REPORT INFORMATION
  Report Type: Spontaneous
  Country: US (occurrence: None)
  Receive Date: 20160509
  Receipt Date: 20160509
  Transmission Date: 20160815
  Serious: No
  Sender: FDA-Public Use
  Company Number: None

PATIENT
  Age: 59 Year
  Sex: Female
  Weight: 61.24 kg

DRUGS (6)
  1. PYRIDOSTIGMINE BR [Concomitant]
  2. CELECOXIB, 200 MG [Suspect]
     Active Substance: CELECOXIB
     Indication: OSTEOARTHRITIS
     Route: 048
     Dates: start: 20160401, end: 20160501
  3. GARLIC CAPSULES [Concomitant]
  4. PREDNISONE. [Concomitant]
     Active Substance: PREDNISONE
  5. CELECOXIB. [Concomitant]
     Active Substance: CELECOXIB
  6. MULTIVITAMIN [Concomitant]
     Active Substance: VITAMINS

REACTIONS (5)
  - Nausea [None]
  - Dyspepsia [None]
  - Abdominal pain [None]
  - Product formulation issue [None]
  - Product substitution issue [None]
